FAERS Safety Report 14351589 (Version 1)
Quarter: 2018Q1

REPORT INFORMATION
  Report Type: Spontaneous
  Country: FR (occurrence: FR)
  Receive Date: 20180104
  Receipt Date: 20180104
  Transmission Date: 20180509
  Serious: Yes (Hospitalization, Other)
  Sender: FDA-Public Use
  Company Number: FR-ASTRAZENECA-2017SF32619

PATIENT
  Age: 24 Year
  Sex: Female
  Weight: 64 kg

DRUGS (20)
  1. ABILIFY [Suspect]
     Active Substance: ARIPIPRAZOLE
     Indication: PSYCHOTIC DISORDER
     Route: 048
     Dates: start: 20150910, end: 20160908
  2. FLUCONAZOLE. [Suspect]
     Active Substance: FLUCONAZOLE
     Indication: FUNGAL INFECTION
     Route: 048
     Dates: start: 20160805, end: 20160811
  3. IBUPROFEN. [Suspect]
     Active Substance: IBUPROFEN
     Indication: MYALGIA
     Dosage: SPIFEN 3 DF UNKNOWN
     Route: 048
     Dates: start: 20160701
  4. DIPIPERON [Suspect]
     Active Substance: PIPAMPERONE
     Indication: PSYCHOTIC DISORDER
     Dosage: UNK
     Route: 048
     Dates: start: 20160311, end: 20160908
  5. ABILIFY [Suspect]
     Active Substance: ARIPIPRAZOLE
     Indication: PRODUCT USED FOR UNKNOWN INDICATION
     Route: 065
     Dates: start: 20150903
  6. ABILIFY [Suspect]
     Active Substance: ARIPIPRAZOLE
     Indication: PRODUCT USED FOR UNKNOWN INDICATION
     Route: 048
  7. ESOMEPRAZOLE [Suspect]
     Active Substance: ESOMEPRAZOLE
     Indication: MYALGIA
     Route: 048
     Dates: start: 20160812, end: 20160921
  8. IBUPROFEN. [Suspect]
     Active Substance: IBUPROFEN
     Indication: MYALGIA
     Route: 048
     Dates: start: 20160712
  9. ABILIFY [Suspect]
     Active Substance: ARIPIPRAZOLE
     Indication: PSYCHOTIC DISORDER
     Route: 065
     Dates: start: 20150903
  10. IBUPROFEN. [Suspect]
     Active Substance: IBUPROFEN
     Indication: MYALGIA
     Route: 048
     Dates: start: 20160712
  11. IBUPROFEN. [Suspect]
     Active Substance: IBUPROFEN
     Indication: FUNGAL INFECTION
     Route: 048
     Dates: start: 20160712
  12. FLUCONAZOLE. [Suspect]
     Active Substance: FLUCONAZOLE
     Indication: FUNGAL INFECTION
     Route: 048
     Dates: start: 20160624, end: 20160707
  13. IBUPROFEN. [Suspect]
     Active Substance: IBUPROFEN
     Indication: FUNGAL INFECTION
     Route: 048
     Dates: start: 20160712
  14. ESOMEPRAZOLE [Suspect]
     Active Substance: ESOMEPRAZOLE
     Indication: MYALGIA
     Route: 048
     Dates: start: 20160812, end: 20160921
  15. ABILIFY [Suspect]
     Active Substance: ARIPIPRAZOLE
     Indication: PSYCHOTIC DISORDER
     Route: 048
  16. IBUPROFEN. [Suspect]
     Active Substance: IBUPROFEN
     Indication: FUNGAL INFECTION
     Dosage: SPIFEN 3 DF UNKNOWN
     Route: 048
     Dates: start: 20160701
  17. DOMPERIDONE [Suspect]
     Active Substance: DOMPERIDONE
     Indication: DYSPHAGIA
     Dosage: 1.0DF INTERMITTENT
     Route: 048
     Dates: start: 20160812, end: 20160816
  18. FLUCONAZOLE. [Suspect]
     Active Substance: FLUCONAZOLE
     Indication: FUNGAL INFECTION
     Dosage: FLUCONAZOLE BIOGARAN 1 DF TID
     Route: 048
     Dates: start: 20160624, end: 20160707
  19. ABILIFY [Suspect]
     Active Substance: ARIPIPRAZOLE
     Indication: PRODUCT USED FOR UNKNOWN INDICATION
     Route: 048
     Dates: start: 20150910, end: 20160908
  20. LEPTICUR [Suspect]
     Active Substance: TROPATEPINE HYDROCHLORIDE
     Indication: EXTRAPYRAMIDAL DISORDER
     Route: 048
     Dates: start: 20160311, end: 20160901

REACTIONS (8)
  - Hypotension [Recovered/Resolved]
  - Abnormal loss of weight [Not Recovered/Not Resolved]
  - Pancreatitis acute [Recovering/Resolving]
  - General physical health deterioration [Unknown]
  - Product use in unapproved indication [Recovered/Resolved]
  - Hepatitis acute [Recovered/Resolved]
  - Decreased appetite [Unknown]
  - Dysphagia [Unknown]

NARRATIVE: CASE EVENT DATE: 20160908
